FAERS Safety Report 23409745 (Version 1)
Quarter: 2024Q1

REPORT INFORMATION
  Report Type: Spontaneous
  Country: IT (occurrence: IT)
  Receive Date: 20240117
  Receipt Date: 20240117
  Transmission Date: 20240410
  Serious: Yes (Other)
  Sender: FDA-Public Use
  Company Number: IT-MYLANLABS-2024M1004276

PATIENT
  Age: 39 Year
  Sex: Male

DRUGS (7)
  1. PREDNISONE [Suspect]
     Active Substance: PREDNISONE
     Indication: Asthma
     Dosage: 25 MILLIGRAM, QD
     Route: 048
  2. Smallpox vaccine live (MVA-BN) [Concomitant]
     Indication: Monkeypox immunisation
     Dosage: UNK
     Route: 065
  3. FLUTICASONE FUROATE [Concomitant]
     Active Substance: FLUTICASONE FUROATE
     Indication: Asthma
     Dosage: 184 MICROGRAM, RESPIRATORY (INHALATION)
     Route: 055
  4. VILANTEROL [Concomitant]
     Active Substance: VILANTEROL
     Indication: Asthma
     Dosage: 22 MICROGRAM, RESPIRATORY (INHALATION)
     Route: 055
  5. TIOTROPIUM BROMIDE [Concomitant]
     Active Substance: TIOTROPIUM BROMIDE
     Indication: Asthma
     Dosage: 2.5 MICROGRAM, RESPIRATORY (INHALATION)
     Route: 055
  6. TECOVIRIMAT [Concomitant]
     Active Substance: TECOVIRIMAT
     Indication: Monkeypox
     Dosage: 600 MILLIGRAM, BID
     Route: 048
  7. PENICILLIN G BENZATHINE [Concomitant]
     Active Substance: PENICILLIN G BENZATHINE
     Indication: Syphilis
     Dosage: 2.4 MEGA-INTERNATIONAL UNIT
     Route: 030

REACTIONS (1)
  - Immune system disorder [Unknown]
